FAERS Safety Report 9326828 (Version 2)
Quarter: 2013Q3

REPORT INFORMATION
  Report Type: Spontaneous
  Country: US (occurrence: US)
  Receive Date: 20130604
  Receipt Date: 20130807
  Transmission Date: 20140515
  Serious: No
  Sender: FDA-Public Use
  Company Number: US-AMGEN-USASP2013032745

PATIENT
  Age: 61 Year
  Sex: Female

DRUGS (8)
  1. ENBREL [Suspect]
     Indication: RHEUMATOID ARTHRITIS
     Dosage: 50 MG, QWK
     Route: 058
     Dates: start: 20090527
  2. BIOTENE                            /03475601/ [Concomitant]
     Dosage: UNK
     Route: 048
  3. EVOXAC [Concomitant]
     Indication: SJOGREN^S SYNDROME
     Dosage: 30 MG, QD
     Route: 048
  4. LEVOXYL [Concomitant]
     Indication: HYPOTHYROIDISM
     Dosage: 0.125 MG, UNK
     Route: 048
  5. REFRESH                            /00007002/ [Concomitant]
     Dosage: UNK
  6. VITAMIN C                          /00008001/ [Concomitant]
     Dosage: 1000 MG, BID
  7. VITAMIN D3 [Concomitant]
     Dosage: 2000 IU, BID
  8. CHONDROITIN GLUCOSAMIN [Concomitant]
     Dosage: UNK UNK, 2 TABLETS BID

REACTIONS (4)
  - Swelling face [Recovered/Resolved]
  - Joint swelling [Not Recovered/Not Resolved]
  - Arthralgia [Not Recovered/Not Resolved]
  - Urticaria [Not Recovered/Not Resolved]
